FAERS Safety Report 4687963-4 (Version None)
Quarter: 2005Q2

REPORT INFORMATION
  Report Type: 
  Country: None (occurrence: None)
  Receive Date: 20050608
  Receipt Date: 20050526
  Transmission Date: 20051028
  Serious: Yes (Disabling)
  Sender: FDA-Public Use
  Company Number: 200300434

PATIENT
  Age: 32 Year
  Sex: Female
  Weight: 65 kg

DRUGS (4)
  1. BOTOX [Suspect]
     Indication: SKIN WRINKLING
     Dosage: 33 UNITS PRN, IM
     Route: 030
  2. MAGNESIUM [Concomitant]
  3. CALCIUM GLUCONATE [Concomitant]
  4. COLLAGEN [Concomitant]

REACTIONS (51)
  - ACTIVITIES OF DAILY LIVING IMPAIRED [None]
  - ANXIETY DISORDER [None]
  - ARTHRALGIA [None]
  - ARTHROPATHY [None]
  - ASTHENIA [None]
  - ASTHENOPIA [None]
  - BACK PAIN [None]
  - CERVICAL SPINE FLATTENING [None]
  - CHEST PAIN [None]
  - CHORIORETINITIS [None]
  - DIPLOPIA [None]
  - DIZZINESS [None]
  - DYSAESTHESIA [None]
  - ELECTROCARDIOGRAM QRS COMPLEX PROLONGED [None]
  - ELECTROCARDIOGRAM ST-T CHANGE [None]
  - EPISTAXIS [None]
  - EXPOSURE TO TOXIC AGENT [None]
  - FATIGUE [None]
  - FEELING ABNORMAL [None]
  - HAEMORRHOIDS [None]
  - HEAD DISCOMFORT [None]
  - HYPERLIPIDAEMIA [None]
  - HYPOAESTHESIA [None]
  - IMMUNE SYSTEM DISORDER [None]
  - IMPAIRED DRIVING ABILITY [None]
  - INJECTION SITE HAEMORRHAGE [None]
  - INJECTION SITE PAIN [None]
  - INTERVERTEBRAL DISC DEGENERATION [None]
  - INTERVERTEBRAL DISC PROTRUSION [None]
  - LYMPHOCYTE PERCENTAGE DECREASED [None]
  - MALAISE [None]
  - MENSTRUATION IRREGULAR [None]
  - MUSCLE CONTRACTIONS INVOLUNTARY [None]
  - MUSCLE SPASMS [None]
  - MUSCLE TWITCHING [None]
  - MYCOPLASMA SEROLOGY POSITIVE [None]
  - NEUTROPHIL PERCENTAGE INCREASED [None]
  - NUCLEAR MAGNETIC RESONANCE IMAGING ABNORMAL [None]
  - OSTEOLYSIS [None]
  - PAIN [None]
  - PALPITATIONS [None]
  - PARAESTHESIA [None]
  - PERIPHERAL SENSORY NEUROPATHY [None]
  - RECTAL HAEMORRHAGE [None]
  - RETINAL DEPOSITS [None]
  - SKIN LESION [None]
  - SPINE MALFORMATION [None]
  - TREMOR [None]
  - VASCULAR FRAGILITY [None]
  - VIRAL INFECTION [None]
  - WHITE BLOOD CELL COUNT INCREASED [None]
